FAERS Safety Report 6821149-X (Version None)
Quarter: 2010Q3

REPORT INFORMATION
  Report Type: 
  Country: None (occurrence: None)
  Receive Date: 20100707
  Receipt Date: 20080122
  Transmission Date: 20110219
  Serious: No
  Sender: FDA-Public Use
  Company Number: US-PFIZER INC-2008006665

PATIENT
  Sex: Female

DRUGS (1)
  1. ZOLOFT [Suspect]
     Indication: POSTPARTUM DEPRESSION
     Dates: start: 20051001

REACTIONS (6)
  - DIZZINESS [None]
  - DRY MOUTH [None]
  - EMOTIONAL DISORDER [None]
  - INSOMNIA [None]
  - NAUSEA [None]
  - WITHDRAWAL SYNDROME [None]
